FAERS Safety Report 19055952 (Version 1)
Quarter: 2021Q1

REPORT INFORMATION
  Report Type: Spontaneous
  Country: US (occurrence: US)
  Receive Date: 20210325
  Receipt Date: 20210325
  Transmission Date: 20210420
  Serious: No
  Sender: FDA-Public Use
  Company Number: US-BIOVITRUM-2021US2993

PATIENT
  Sex: Male
  Weight: 4 kg

DRUGS (5)
  1. SYNAGIS [Suspect]
     Active Substance: PALIVIZUMAB
     Indication: PREMATURE BABY
  2. SYNAGIS [Suspect]
     Active Substance: PALIVIZUMAB
     Indication: BRONCHOPULMONARY DYSPLASIA
  3. POLY?VI?SOL WITH IRON [Concomitant]
     Active Substance: IRON\VITAMINS
  4. PRILOSEC [Concomitant]
     Active Substance: OMEPRAZOLE MAGNESIUM
  5. SYNAGIS [Suspect]
     Active Substance: PALIVIZUMAB
     Indication: PATENT DUCTUS ARTERIOSUS
     Route: 030
     Dates: start: 202102

REACTIONS (1)
  - Injection site swelling [Recovered/Resolved]
